FAERS Safety Report 4826541-0 (Version None)
Quarter: 2005Q4

REPORT INFORMATION
  Report Type: 
  Country: None (occurrence: None)
  Receive Date: 20051111
  Receipt Date: 20051104
  Transmission Date: 20060501
  Serious: Yes (Death, Disabling)
  Sender: FDA-Public Use
  Company Number: US-MERCK-0511USA00959

PATIENT
  Sex: Female

DRUGS (1)
  1. VIOXX [Suspect]
     Route: 048
     Dates: start: 19990501, end: 20040930

REACTIONS (12)
  - ANHEDONIA [None]
  - CARDIAC DISORDER [None]
  - CARDIOVASCULAR DISORDER [None]
  - CEREBROVASCULAR ACCIDENT [None]
  - DEATH [None]
  - EMOTIONAL DISTRESS [None]
  - FEAR [None]
  - LIVER DISORDER [None]
  - MYOCARDIAL INFARCTION [None]
  - PAIN [None]
  - PULMONARY EMBOLISM [None]
  - RENAL DISORDER [None]
